FAERS Safety Report 9585842 (Version 1)
Quarter: 2013Q4

REPORT INFORMATION
  Report Type: Spontaneous
  Country: JP (occurrence: None)
  Receive Date: 20131001
  Receipt Date: 20131001
  Transmission Date: 20140711
  Serious: Yes (Hospitalization)
  Sender: FDA-Public Use
  Company Number: FK201304399

PATIENT
  Age: 80 Year
  Sex: Male

DRUGS (5)
  1. FLUOROURACIL (MANUFACTURER UNKNOWN) (FLUOROURACIL) (FLUOROURACIL) [Suspect]
     Indication: PRODUCT USED FOR UNKNOWN INDICATION
     Dosage: (NOT OTHERWISE SPECIFIED)
     Route: 042
     Dates: start: 200811
  2. LEUCOVORIN (CALCIUM FOLINATE) [Concomitant]
  3. IRINOTECAN (IRINOTECAN) [Concomitant]
  4. BEVACIZUMAB (BEVACIZUMAB) [Concomitant]
  5. CETUXIMAB (CETUXIMAB) (INFUSION) [Concomitant]

REACTIONS (1)
  - Hyperammonaemic encephalopathy [None]
